FAERS Safety Report 25092363 (Version 2)
Quarter: 2025Q1

REPORT INFORMATION
  Report Type: Spontaneous
  Country: SE (occurrence: SE)
  Receive Date: 20250319
  Receipt Date: 20250326
  Transmission Date: 20250409
  Serious: Yes (Other)
  Sender: RANBAXY
  Company Number: SE-ALMIRALL-SE-2025-0572

PATIENT
  Age: 32 Year
  Sex: Male

DRUGS (1)
  1. TILDRAKIZUMAB [Suspect]
     Active Substance: TILDRAKIZUMAB
     Indication: Psoriasis
     Route: 065

REACTIONS (2)
  - Pericardial effusion [Recovered/Resolved]
  - Condition aggravated [Recovered/Resolved]
